FAERS Safety Report 5607643-8 (Version None)
Quarter: 2008Q1

REPORT INFORMATION
  Report Type: 
  Country: None (occurrence: None)
  Receive Date: 20080130
  Receipt Date: 20080123
  Transmission Date: 20080703
  Serious: Yes (Hospitalization)
  Sender: FDA-Public Use
  Company Number: JP-JNJFOC-20080106047

PATIENT
  Age: 67 Year
  Sex: Female
  Weight: 53 kg

DRUGS (7)
  1. REMICADE [Suspect]
     Dosage: 8TH INFUSION
     Route: 042
  2. REMICADE [Suspect]
     Indication: RHEUMATOID ARTHRITIS
     Dosage: INFUSIONS 1-7, DATES UNSPECIFIED
     Route: 042
  3. RHEUMATREX [Concomitant]
     Indication: RHEUMATOID ARTHRITIS
  4. FOLIAMIN [Concomitant]
     Route: 048
  5. ISCOTIN [Concomitant]
     Route: 048
  6. TAKEPRON [Concomitant]
  7. ACTONEL [Concomitant]
     Route: 048

REACTIONS (1)
  - LYMPHOMA [None]
